FAERS Safety Report 5787664-5 (Version None)
Quarter: 2008Q2

REPORT INFORMATION
  Report Type: 
  Country: None (occurrence: None)
  Receive Date: 20080625
  Receipt Date: 20071017
  Transmission Date: 20081010
  Serious: No
  Sender: FDA-Public Use
  Company Number: US-ASTRAZENECA-2007UW24078

PATIENT
  Age: 70 Year
  Sex: Female

DRUGS (6)
  1. PULMICORT FLEXHALER [Suspect]
     Indication: EMPHYSEMA
     Route: 055
  2. LEVOXYL SR [Concomitant]
  3. VITAMIN FISH OIL [Concomitant]
  4. CLARITIN [Concomitant]
  5. EXCEDRIN (MIGRAINE) [Concomitant]
     Indication: MIGRAINE
  6. TYLENOL [Concomitant]

REACTIONS (3)
  - CARDIAC FLUTTER [None]
  - MEDICATION ERROR [None]
  - PANIC REACTION [None]
